FAERS Safety Report 8464856-8 (Version None)
Quarter: 2012Q2

REPORT INFORMATION
  Report Type: 
  Country: None (occurrence: None)
  Receive Date: 20120626
  Receipt Date: 20120614
  Transmission Date: 20120825
  Serious: Yes (Hospitalization)
  Sender: FDA-Public Use
  Company Number: US-ELI_LILLY_AND_COMPANY-US201206005255

PATIENT
  Sex: Female

DRUGS (3)
  1. NOVOLOG [Concomitant]
  2. HUMALOG [Suspect]
     Indication: DIABETES MELLITUS
     Dosage: UNK, UNKNOWN
  3. HUMALOG [Suspect]
     Dosage: UNK, UNKNOWN

REACTIONS (2)
  - SPINAL FRACTURE [None]
  - BLOOD GLUCOSE DECREASED [None]
